FAERS Safety Report 20886694 (Version 2)
Quarter: 2022Q2

REPORT INFORMATION
  Report Type: Report from Study
  Country: US (occurrence: US)
  Receive Date: 20220527
  Receipt Date: 20220602
  Transmission Date: 20220721
  Serious: Yes (Other)
  Sender: FDA-Public Use
  Company Number: US-TEVA-2022-US-2040475

PATIENT
  Age: 32 Year
  Sex: Female

DRUGS (2)
  1. CLARAVIS [Suspect]
     Active Substance: ISOTRETINOIN
     Route: 065
     Dates: start: 20220427
  2. VITAMINS [Suspect]
     Active Substance: VITAMINS
     Route: 065
     Dates: end: 2022

REACTIONS (2)
  - Mood altered [Recovered/Resolved]
  - Inappropriate affect [Recovered/Resolved]

NARRATIVE: CASE EVENT DATE: 20220503
